FAERS Safety Report 8810663 (Version 1)
Quarter: 2012Q4

REPORT INFORMATION
  Report Type: Spontaneous
  Country: US (occurrence: None)
  Receive Date: 20120924
  Receipt Date: 20120924
  Transmission Date: 20130627
  Serious: Yes (Hospitalization)
  Sender: FDA-Public Use
  Company Number: None

PATIENT
  Age: 66 Year
  Sex: Male
  Weight: 127.01 kg

DRUGS (1)
  1. HUMIRA [Suspect]
     Indication: PSORIATIC ARTHRITIS
     Dosage: injection from preloaded pen 2 times a month sq
weeks
     Route: 058
     Dates: start: 20120817, end: 20120914

REACTIONS (4)
  - Dizziness [None]
  - Fatigue [None]
  - Heart rate increased [None]
  - Heart rate irregular [None]
